FAERS Safety Report 10153011 (Version 1)
Quarter: 2014Q2

REPORT INFORMATION
  Report Type: Spontaneous
  Country: FR (occurrence: FR)
  Receive Date: 20140505
  Receipt Date: 20140505
  Transmission Date: 20141212
  Serious: Yes (Hospitalization)
  Sender: FDA-Public Use
  Company Number: FR-PFIZER INC-2014122171

PATIENT
  Age: 90 Year
  Sex: Female

DRUGS (9)
  1. SPIRONOLACTONE [Suspect]
     Indication: HYPERTENSION
     Dosage: 1 DF, ALTERNATE DAY
     Route: 048
     Dates: end: 20140220
  2. FLUDEX [Suspect]
     Indication: HYPERTENSION
     Dosage: 1 DF, ALTERNATE DAY
     Route: 048
     Dates: end: 20140220
  3. INEXIUM /01479302/ [Concomitant]
     Dosage: 20 MG, DAILY
     Dates: end: 20140320
  4. XARELTO [Concomitant]
     Dosage: 15 MG, DAILY
  5. HEMIGOXINE [Concomitant]
     Dosage: 0.125 MG, DAILY
  6. TAREG [Concomitant]
     Dosage: 160 MG, DAILY
  7. TANAKAN [Concomitant]
     Dosage: 90 MG, DAILY
  8. CLORAZEPATE DIPOTASSIUM [Concomitant]
     Dosage: 5 MG, DAILY
  9. AMINO ACIDS/MINERALS/VITAMINS [Concomitant]
     Dosage: 1 DF, DAILY

REACTIONS (9)
  - Hyponatraemia [Recovered/Resolved]
  - Hypochloraemia [Recovering/Resolving]
  - General physical health deterioration [Unknown]
  - Pneumonia [Unknown]
  - Somnolence [Unknown]
  - Rectal haemorrhage [Unknown]
  - Fall [Unknown]
  - Hyperkalaemia [Recovered/Resolved]
  - Vitamin D deficiency [Unknown]
